FAERS Safety Report 23391094 (Version 1)
Quarter: 2024Q1

REPORT INFORMATION
  Report Type: Spontaneous
  Country: US (occurrence: US)
  Receive Date: 20240111
  Receipt Date: 20240111
  Transmission Date: 20240410
  Serious: No
  Sender: FDA-Public Use
  Company Number: US-E2BLSMVVAL-SPO/USA/23/0032782

PATIENT
  Age: 60 Year
  Sex: Female

DRUGS (1)
  1. IBANDRONATE SODIUM [Suspect]
     Active Substance: IBANDRONATE SODIUM
     Indication: Product used for unknown indication
     Dosage: 150MG-DRL 1 IN 1 CARTON

REACTIONS (5)
  - Hyperhidrosis [Unknown]
  - Hiccups [Unknown]
  - Urine odour abnormal [Unknown]
  - Nausea [Unknown]
  - Dry mouth [Unknown]
